FAERS Safety Report 7134736-9 (Version None)
Quarter: 2010Q4

REPORT INFORMATION
  Report Type: 
  Country: None (occurrence: None)
  Receive Date: 20101203
  Receipt Date: 20101110
  Transmission Date: 20110411
  Serious: Yes (Other)
  Sender: FDA-Public Use
  Company Number: AU-ROCHE-740336

PATIENT
  Sex: Female

DRUGS (2)
  1. HERCEPTIN [Suspect]
     Indication: BREAST CANCER METASTATIC
     Dosage: FORM: INFUSION
     Route: 065
  2. HERCEPTIN [Suspect]
     Route: 065

REACTIONS (6)
  - BLISTER [None]
  - DYSPNOEA [None]
  - LACRIMATION INCREASED [None]
  - MALAISE [None]
  - RHINORRHOEA [None]
  - TIC [None]
